FAERS Safety Report 8829713 (Version 1)
Quarter: 2012Q4

REPORT INFORMATION
  Report Type: 
  Country: US (occurrence: US)
  Receive Date: 20121008
  Receipt Date: 20121008
  Transmission Date: 20130627
  Serious: No
  Sender: FDA-Public Use
  Company Number: US-ASTRAZENECA-2012SE74579

PATIENT
  Age: 90 Year
  Sex: Female

DRUGS (1)
  1. CRESTOR [Suspect]
     Route: 048
     Dates: start: 2004

REACTIONS (4)
  - Osteoarthritis [Unknown]
  - Spinal osteoarthritis [Unknown]
  - Mobility decreased [Unknown]
  - Muscular weakness [Unknown]
